FAERS Safety Report 14276617 (Version 1)
Quarter: 2017Q4

REPORT INFORMATION
  Report Type: Spontaneous
  Country: FR (occurrence: FR)
  Receive Date: 20171211
  Receipt Date: 20171211
  Transmission Date: 20180321
  Serious: Yes (Hospitalization)
  Sender: FDA-Public Use
  Company Number: FR-OTSUKA-2017_014422

PATIENT
  Age: 14 Year
  Sex: Female

DRUGS (2)
  1. TERCIAN [Suspect]
     Active Substance: CYAMEMAZINE
     Indication: MANIA
     Dosage: 20 MG, QD
     Route: 048
     Dates: start: 20170610, end: 20170613
  2. ABILIFY [Suspect]
     Active Substance: ARIPIPRAZOLE
     Indication: MANIA
     Dosage: 2 MG, QD
     Route: 048
     Dates: start: 20170610

REACTIONS (2)
  - Product use in unapproved indication [Unknown]
  - Therapeutic product ineffective [Recovered/Resolved]

NARRATIVE: CASE EVENT DATE: 20170610
